FAERS Safety Report 4662341-2 (Version None)
Quarter: 2005Q2

REPORT INFORMATION
  Report Type: 
  Country: None (occurrence: None)
  Receive Date: 20050512
  Receipt Date: 20050426
  Transmission Date: 20051028
  Serious: Yes (Other)
  Sender: FDA-Public Use
  Company Number: USA041184234

PATIENT
  Age: 41 Year
  Sex: Male

DRUGS (5)
  1. ZYPREXA [Suspect]
     Indication: SCHIZOAFFECTIVE DISORDER
     Dosage: 30 MG
     Dates: start: 20040701, end: 20041112
  2. SEROQUEL [Concomitant]
  3. COGENTIN (BENZATROPINE MESILATE0 [Concomitant]
  4. CLONAZEPAM [Concomitant]
  5. DEPAKOTE [Concomitant]

REACTIONS (1)
  - NEUTROPENIA [None]
